FAERS Safety Report 24629172 (Version 1)
Quarter: 2024Q4

REPORT INFORMATION
  Report Type: Spontaneous
  Country: CA (occurrence: CA)
  Receive Date: 20241118
  Receipt Date: 20241118
  Transmission Date: 20250115
  Serious: Yes (Death, Life-Threatening, Hospitalization, Disabling, Other)
  Sender: Haleon PLC
  Company Number: CA-002147023-NVSC2024CA068812

PATIENT
  Age: 44 Year
  Sex: Female
  Weight: 97 kg

DRUGS (93)
  1. VOLTAREN [Suspect]
     Active Substance: DICLOFENAC SODIUM
     Indication: Product used for unknown indication
  2. FOLIC ACID [Suspect]
     Active Substance: FOLIC ACID
     Indication: Rheumatoid arthritis
  3. FOLIC ACID [Suspect]
     Active Substance: FOLIC ACID
  4. ENBREL [Suspect]
     Active Substance: ETANERCEPT
     Indication: Rheumatoid arthritis
     Route: 058
  5. ENBREL [Suspect]
     Active Substance: ETANERCEPT
     Route: 058
  6. ENBREL [Suspect]
     Active Substance: ETANERCEPT
  7. ENBREL [Suspect]
     Active Substance: ETANERCEPT
  8. ENBREL [Suspect]
     Active Substance: ETANERCEPT
     Route: 058
  9. RITUXAN [Suspect]
     Active Substance: RITUXIMAB
     Indication: Rheumatoid arthritis
     Route: 058
  10. RITUXAN [Suspect]
     Active Substance: RITUXIMAB
     Route: 042
  11. RITUXAN [Suspect]
     Active Substance: RITUXIMAB
     Route: 042
  12. SULFAMETHOXAZOLE [Suspect]
     Active Substance: SULFAMETHOXAZOLE
     Indication: Product used for unknown indication
  13. COSENTYX [Suspect]
     Active Substance: SECUKINUMAB
     Indication: Product used for unknown indication
  14. DICLOFENAC POTASSIUM [Suspect]
     Active Substance: DICLOFENAC POTASSIUM
     Indication: Rheumatoid arthritis
  15. PERIOGARD [Suspect]
     Active Substance: CHLORHEXIDINE GLUCONATE
     Indication: Product used for unknown indication
     Dosage: ALCOHOL FREE
     Route: 002
  16. HYDROXYCHLOROQUINE SULFATE [Suspect]
     Active Substance: HYDROXYCHLOROQUINE SULFATE
     Indication: Rheumatoid arthritis
     Route: 048
  17. PHTHALYLSULFATHIAZOLE [Suspect]
     Active Substance: PHTHALYLSULFATHIAZOLE
     Indication: Rheumatoid arthritis
     Route: 048
  18. ISOPROPYL ALCOHOL [Suspect]
     Active Substance: ISOPROPYL ALCOHOL
     Indication: Product used for unknown indication
     Route: 061
  19. HYDROCORTISONE [Suspect]
     Active Substance: HYDROCORTISONE
     Indication: Rheumatoid arthritis
     Route: 065
  20. BENYLIN [Suspect]
     Active Substance: DIPHENHYDRAMINE HYDROCHLORIDE
     Indication: Product used for unknown indication
     Route: 065
  21. CETIRIZINE HYDROCHLORIDE [Suspect]
     Active Substance: CETIRIZINE HYDROCHLORIDE
     Indication: Rheumatoid arthritis
  22. CETIRIZINE HYDROCHLORIDE [Suspect]
     Active Substance: CETIRIZINE HYDROCHLORIDE
  23. PSEUDOEPHEDRINE [Suspect]
     Active Substance: PSEUDOEPHEDRINE
     Indication: Product used for unknown indication
  24. SULFASALAZINE [Suspect]
     Active Substance: SULFASALAZINE
     Indication: Rheumatoid arthritis
     Route: 048
  25. SULFASALAZINE [Suspect]
     Active Substance: SULFASALAZINE
     Route: 048
  26. SULFASALAZINE [Suspect]
     Active Substance: SULFASALAZINE
     Route: 048
  27. SULFASALAZINE [Suspect]
     Active Substance: SULFASALAZINE
  28. SULFASALAZINE [Suspect]
     Active Substance: SULFASALAZINE
  29. SULFASALAZINE [Suspect]
     Active Substance: SULFASALAZINE
     Route: 048
  30. OXYCODONE TEREPHTHALATE [Suspect]
     Active Substance: OXYCODONE TEREPHTHALATE
     Indication: Product used for unknown indication
  31. TYLENOL [Suspect]
     Active Substance: ACETAMINOPHEN
     Indication: Rheumatoid arthritis
     Route: 042
  32. TYLENOL [Suspect]
     Active Substance: ACETAMINOPHEN
     Route: 058
  33. LEFLUNOMIDE [Suspect]
     Active Substance: LEFLUNOMIDE
     Indication: Rheumatoid arthritis
     Route: 048
  34. LEFLUNOMIDE [Suspect]
     Active Substance: LEFLUNOMIDE
     Route: 065
  35. LEFLUNOMIDE [Suspect]
     Active Substance: LEFLUNOMIDE
     Route: 048
  36. PREDNISONE [Suspect]
     Active Substance: PREDNISONE
     Indication: Rheumatoid arthritis
     Route: 048
  37. FOSAMAX [Suspect]
     Active Substance: ALENDRONATE SODIUM
     Indication: Rheumatoid arthritis
     Route: 048
  38. TOPICORT [Suspect]
     Active Substance: DESOXIMETASONE
     Indication: Rheumatoid arthritis
     Route: 003
  39. PANTOPRAZOLE SODIUM [Suspect]
     Active Substance: PANTOPRAZOLE SODIUM
     Indication: Product used for unknown indication
     Route: 065
  40. SULFAMETHOXAZOLE AND TRIMETHOPRIM [Suspect]
     Active Substance: SULFAMETHOXAZOLE\TRIMETHOPRIM
     Indication: Product used for unknown indication
  41. RITUXIMAB [Suspect]
     Active Substance: RITUXIMAB
     Indication: Product used for unknown indication
     Route: 042
  42. RITUXIMAB [Suspect]
     Active Substance: RITUXIMAB
     Route: 058
  43. RITUXIMAB [Suspect]
     Active Substance: RITUXIMAB
     Route: 065
  44. ORENCIA [Suspect]
     Active Substance: ABATACEPT
     Indication: Rheumatoid arthritis
     Route: 058
  45. ORENCIA [Suspect]
     Active Substance: ABATACEPT
     Route: 058
  46. ORENCIA [Suspect]
     Active Substance: ABATACEPT
     Route: 058
  47. ORENCIA [Suspect]
     Active Substance: ABATACEPT
     Route: 058
  48. ORENCIA [Suspect]
     Active Substance: ABATACEPT
     Route: 058
  49. ORENCIA [Suspect]
     Active Substance: ABATACEPT
     Route: 058
  50. ORENCIA [Suspect]
     Active Substance: ABATACEPT
     Route: 058
  51. ORENCIA [Suspect]
     Active Substance: ABATACEPT
     Route: 058
  52. ORENCIA [Suspect]
     Active Substance: ABATACEPT
     Route: 042
  53. ORENCIA [Suspect]
     Active Substance: ABATACEPT
     Route: 058
  54. ORENCIA [Suspect]
     Active Substance: ABATACEPT
     Route: 058
  55. ORENCIA [Suspect]
     Active Substance: ABATACEPT
     Route: 042
  56. ORENCIA [Suspect]
     Active Substance: ABATACEPT
     Route: 042
  57. ORENCIA [Suspect]
     Active Substance: ABATACEPT
     Route: 042
  58. PSEUDOEPHEDRINE [Suspect]
     Active Substance: PSEUDOEPHEDRINE
     Indication: Rheumatoid arthritis
  59. HUMIRA [Suspect]
     Active Substance: ADALIMUMAB
     Indication: Rheumatoid arthritis
     Route: 003
  60. INFLIXIMAB [Suspect]
     Active Substance: INFLIXIMAB
     Indication: Rheumatoid arthritis
  61. PLAQUENIL [Suspect]
     Active Substance: HYDROXYCHLOROQUINE SULFATE
     Indication: Rheumatoid arthritis
     Route: 048
  62. SIMPONI [Suspect]
     Active Substance: GOLIMUMAB
     Indication: Rheumatoid arthritis
     Route: 058
  63. SIMPONI [Suspect]
     Active Substance: GOLIMUMAB
     Route: 052
  64. SIMPONI [Suspect]
     Active Substance: GOLIMUMAB
     Route: 058
  65. SIMPONI [Suspect]
     Active Substance: GOLIMUMAB
     Route: 058
  66. SIMPONI [Suspect]
     Active Substance: GOLIMUMAB
  67. COSENTYX [Concomitant]
     Active Substance: SECUKINUMAB
     Indication: Product used for unknown indication
  68. HYDROXYCHLOROQUINE [Suspect]
     Active Substance: HYDROXYCHLOROQUINE
     Indication: Systemic lupus erythematosus
  69. HYDROXYCHLOROQUINE [Suspect]
     Active Substance: HYDROXYCHLOROQUINE
     Indication: Rheumatoid arthritis
  70. DICLOFENAC SODIUM [Suspect]
     Active Substance: DICLOFENAC SODIUM
     Indication: Rheumatoid arthritis
     Route: 065
  71. VITAMIN C [Suspect]
     Active Substance: ASCORBIC ACID
     Indication: Product used for unknown indication
     Route: 016
  72. TRIPROLIDINE HYDROCHLORIDE [Suspect]
     Active Substance: TRIPROLIDINE HYDROCHLORIDE
     Indication: Product used for unknown indication
  73. METHOTREXATE [Suspect]
     Active Substance: METHOTREXATE
     Indication: Rheumatoid arthritis
  74. METHOTREXATE [Suspect]
     Active Substance: METHOTREXATE
     Route: 048
  75. METHOTREXATE [Suspect]
     Active Substance: METHOTREXATE
     Route: 048
  76. METHOTREXATE [Suspect]
     Active Substance: METHOTREXATE
     Route: 037
  77. METHOTREXATE [Suspect]
     Active Substance: METHOTREXATE
     Route: 052
  78. METHOTREXATE [Suspect]
     Active Substance: METHOTREXATE
     Route: 048
  79. METHOTREXATE [Suspect]
     Active Substance: METHOTREXATE
     Route: 065
  80. METHOTREXATE [Suspect]
     Active Substance: METHOTREXATE
     Route: 048
  81. ERELZI [Suspect]
     Active Substance: ETANERCEPT-SZZS
     Indication: Rheumatoid arthritis
  82. OXYCODONE [Suspect]
     Active Substance: OXYCODONE
     Indication: Product used for unknown indication
  83. XELJANZ [Suspect]
     Active Substance: TOFACITINIB CITRATE
     Indication: Rheumatoid arthritis
  84. XELJANZ [Suspect]
     Active Substance: TOFACITINIB CITRATE
  85. XELJANZ [Suspect]
     Active Substance: TOFACITINIB CITRATE
  86. XELJANZ [Suspect]
     Active Substance: TOFACITINIB CITRATE
  87. XELJANZ [Suspect]
     Active Substance: TOFACITINIB CITRATE
  88. XELJANZ [Suspect]
     Active Substance: TOFACITINIB CITRATE
  89. REMICADE [Suspect]
     Active Substance: INFLIXIMAB
     Indication: Rheumatoid arthritis
     Route: 042
  90. REMICADE [Suspect]
     Active Substance: INFLIXIMAB
     Route: 058
  91. REMICADE [Suspect]
     Active Substance: INFLIXIMAB
     Route: 042
  92. OXYCODONE AND ACETAMINOPHEN [Suspect]
     Active Substance: ACETAMINOPHEN\OXYCODONE HYDROCHLORIDE
     Indication: Product used for unknown indication
  93. STELARA [Suspect]
     Active Substance: USTEKINUMAB
     Indication: Rheumatoid arthritis
     Route: 058

REACTIONS (37)
  - Systemic lupus erythematosus [Fatal]
  - Rheumatic fever [Fatal]
  - Oedema peripheral [Fatal]
  - Rheumatoid arthritis [Fatal]
  - Pruritus [Fatal]
  - Pyrexia [Fatal]
  - Oedema [Fatal]
  - Nasopharyngitis [Fatal]
  - Psoriatic arthropathy [Fatal]
  - Pregnancy [Fatal]
  - Wheezing [Fatal]
  - Obesity [Fatal]
  - Peripheral venous disease [Fatal]
  - Urticaria [Fatal]
  - Night sweats [Fatal]
  - Weight increased [Fatal]
  - Sinusitis [Fatal]
  - Synovitis [Fatal]
  - Vomiting [Fatal]
  - Rash [Fatal]
  - Wound [Fatal]
  - Rheumatoid factor positive [Fatal]
  - Pain [Fatal]
  - Osteoarthritis [Fatal]
  - Swollen joint count increased [Fatal]
  - Musculoskeletal pain [Fatal]
  - Swelling [Fatal]
  - Paraesthesia [Fatal]
  - Muscle spasms [Fatal]
  - Muscle injury [Fatal]
  - Road traffic accident [Fatal]
  - Pericarditis [Fatal]
  - Musculoskeletal stiffness [Fatal]
  - Pemphigus [Fatal]
  - Peripheral swelling [Fatal]
  - Maternal exposure timing unspecified [Fatal]
  - Type 2 diabetes mellitus [Fatal]
